FAERS Safety Report 25004542 (Version 4)
Quarter: 2025Q4

REPORT INFORMATION
  Report Type: Report from Study
  Country: CN (occurrence: CN)
  Receive Date: 20250224
  Receipt Date: 20251224
  Transmission Date: 20260118
  Serious: Yes (Hospitalization)
  Sender: ALEXION PHARMACEUTICALS
  Company Number: CN-ASTRAZENECA-202502GLO012542CN

PATIENT
  Age: 52 Year
  Sex: Male

DRUGS (15)
  1. OSIMERTINIB [Suspect]
     Active Substance: OSIMERTINIB
     Indication: Non-small cell lung cancer
     Dosage: 80 MILLIGRAM, QD
     Route: 061
     Dates: start: 20241203
  2. TETRANDRINE [Concomitant]
     Active Substance: TETRANDRINE
     Indication: Pain in extremity
     Dosage: UNK
     Route: 065
     Dates: start: 20241022, end: 20241028
  3. FLURBIPROFEN [Concomitant]
     Active Substance: FLURBIPROFEN
     Indication: Pain in extremity
     Dosage: UNK
     Route: 065
     Dates: start: 20241022, end: 20241024
  4. PREGABALIN [Concomitant]
     Active Substance: PREGABALIN
     Indication: Pain in extremity
     Dosage: UNK
     Route: 065
     Dates: start: 20241022, end: 20241028
  5. OXYCODONE AND ACETAMINOPHEN [Concomitant]
     Active Substance: ACETAMINOPHEN\OXYCODONE HYDROCHLORIDE
     Indication: Pain in extremity
     Dosage: UNK
     Route: 065
     Dates: start: 20241024, end: 20241028
  6. VITAMIN D2 [Concomitant]
     Active Substance: ERGOCALCIFEROL
     Indication: Vitamin D deficiency
     Dosage: UNK
     Route: 065
     Dates: start: 20241024, end: 20241024
  7. DEXAMETHASONE ACETATE [Concomitant]
     Active Substance: DEXAMETHASONE ACETATE
     Indication: Prophylaxis
     Dosage: UNK
     Route: 065
     Dates: start: 20241203, end: 20241206
  8. VITAMIN B6 [Concomitant]
     Active Substance: PYRIDOXINE HYDROCHLORIDE
     Dosage: UNK
     Route: 065
     Dates: start: 20241204, end: 20241204
  9. POTASSIUM CHLORIDE [Concomitant]
     Active Substance: POTASSIUM CHLORIDE
     Dosage: UNK
     Route: 065
     Dates: start: 20241204, end: 20241204
  10. VITAMIN C [Concomitant]
     Active Substance: ASCORBIC ACID
     Dosage: UNK
     Route: 065
     Dates: start: 20241204, end: 20241204
  11. ESOMEPRAZOLE [Concomitant]
     Active Substance: ESOMEPRAZOLE
     Dosage: UNK
     Route: 065
  12. FOSAPREPITANT DIMEGLUMINE [Concomitant]
     Active Substance: FOSAPREPITANT DIMEGLUMINE
     Dosage: UNK
     Route: 065
     Dates: start: 20241204, end: 20241204
  13. ONDANSETRON HYDROCHLORIDE [Concomitant]
     Active Substance: ONDANSETRON HYDROCHLORIDE
     Indication: Vomiting
     Dosage: UNK
     Route: 065
     Dates: start: 20251204, end: 20251206
  14. METOCLOPRAMIDE DIHYDROCHLORIDE [Concomitant]
     Active Substance: METOCLOPRAMIDE DIHYDROCHLORIDE
     Indication: Vomiting
     Dosage: UNK
     Route: 065
     Dates: start: 20241204, end: 20241206
  15. VITAMIN B6 [Concomitant]
     Active Substance: PYRIDOXINE HYDROCHLORIDE
     Dosage: UNK
     Route: 065
     Dates: start: 20251223, end: 20251223

REACTIONS (2)
  - Pneumonia [Recovering/Resolving]
  - Infectious pleural effusion [Recovering/Resolving]

NARRATIVE: CASE EVENT DATE: 20250116
